FAERS Safety Report 20517238 (Version 3)
Quarter: 2023Q4

REPORT INFORMATION
  Report Type: Spontaneous
  Country: CA (occurrence: None)
  Receive Date: 20220225
  Receipt Date: 20231130
  Transmission Date: 20240110
  Serious: Yes (Other)
  Sender: FDA-Public Use
  Company Number: CA-PFIZER INC-202101381343

PATIENT
  Age: 27 Year
  Sex: Female
  Weight: 48 kg

DRUGS (6)
  1. METHOTREXATE [Suspect]
     Active Substance: METHOTREXATE
     Indication: Product used for unknown indication
  2. METHOTREXATE [Suspect]
     Active Substance: METHOTREXATE
  3. CIPROFLOXACIN [Concomitant]
     Active Substance: CIPROFLOXACIN
     Dosage: ONGOING
     Dates: start: 202101
  4. INFLECTRA [Concomitant]
     Active Substance: INFLIXIMAB-DYYB
     Indication: Crohn^s disease
     Dosage: Q 0, 2, 6 WEEK DOSE, THEN Q 8 WEEKS
     Dates: start: 20210308, end: 20220203
  5. INFLECTRA [Concomitant]
     Active Substance: INFLIXIMAB-DYYB
     Dosage: EVERY 8 WEEKS; ONGOING
     Dates: start: 20220331
  6. INFLECTRA [Concomitant]
     Active Substance: INFLIXIMAB-DYYB
     Dosage: EVERY 8 WEEKS; ONGOING
     Dates: start: 20230511

REACTIONS (6)
  - Crohn^s disease [Not Recovered/Not Resolved]
  - Urticaria [Recovered/Resolved]
  - COVID-19 [Unknown]
  - Eyelid infection [Unknown]
  - Faecal calprotectin increased [Not Recovered/Not Resolved]
  - Anal fistula [Not Recovered/Not Resolved]

NARRATIVE: CASE EVENT DATE: 20210901
